FAERS Safety Report 25630439 (Version 1)
Quarter: 2025Q3

REPORT INFORMATION
  Report Type: Spontaneous
  Country: KR (occurrence: KR)
  Receive Date: 20250801
  Receipt Date: 20250801
  Transmission Date: 20251021
  Serious: Yes (Other)
  Sender: Teyro Labs
  Company Number: KR-TEYRO-2025-TY-000610

PATIENT
  Age: 7 Year
  Sex: Male

DRUGS (17)
  1. CARBOPLATIN [Suspect]
     Active Substance: CARBOPLATIN
     Indication: Osteosarcoma
     Route: 065
  2. CARBOPLATIN [Suspect]
     Active Substance: CARBOPLATIN
     Route: 065
  3. GEMCITABINE [Suspect]
     Active Substance: GEMCITABINE
     Indication: Osteosarcoma
     Route: 065
  4. IFOSFAMIDE [Suspect]
     Active Substance: IFOSFAMIDE
     Indication: Osteosarcoma
     Route: 065
  5. IFOSFAMIDE [Suspect]
     Active Substance: IFOSFAMIDE
     Route: 065
  6. ETOPOSIDE [Suspect]
     Active Substance: ETOPOSIDE
     Indication: Osteosarcoma
     Route: 065
  7. ETOPOSIDE [Suspect]
     Active Substance: ETOPOSIDE
     Route: 065
  8. CISPLATIN [Suspect]
     Active Substance: CISPLATIN
     Indication: Osteosarcoma
     Route: 065
  9. ADRIAMYCIN [Suspect]
     Active Substance: DOXORUBICIN HYDROCHLORIDE
     Indication: Osteosarcoma
     Route: 065
  10. METHOTREXATE [Suspect]
     Active Substance: METHOTREXATE
     Indication: Osteosarcoma
     Route: 065
  11. DOCETAXEL [Concomitant]
     Active Substance: DOCETAXEL
     Indication: Osteosarcoma
     Route: 065
  12. BLEOMYCIN [Concomitant]
     Active Substance: BLEOMYCIN SULFATE
     Indication: Osteosarcoma
     Route: 065
  13. CYCLOPHOSPHAMIDE [Concomitant]
     Active Substance: CYCLOPHOSPHAMIDE
     Indication: Osteosarcoma
     Route: 065
  14. DACTINOMYCIN [Concomitant]
     Active Substance: DACTINOMYCIN
     Indication: Osteosarcoma
     Route: 065
  15. OXALIPLATIN [Concomitant]
     Active Substance: OXALIPLATIN
     Indication: Osteosarcoma
     Route: 065
  16. OLAPARIB [Concomitant]
     Active Substance: OLAPARIB
     Indication: Osteosarcoma
     Route: 065
  17. IRINOTECAN [Concomitant]
     Active Substance: IRINOTECAN
     Indication: Osteosarcoma
     Route: 065

REACTIONS (5)
  - Neoplasm recurrence [Unknown]
  - Neoplasm progression [Unknown]
  - Febrile neutropenia [Unknown]
  - Mucosal inflammation [Unknown]
  - Off label use [Unknown]
